FAERS Safety Report 4295308-7 (Version None)
Quarter: 2004Q1

REPORT INFORMATION
  Report Type: 
  Country: None (occurrence: None)
  Receive Date: 20040216
  Receipt Date: 20030530
  Transmission Date: 20041129
  Serious: No
  Sender: FDA-Public Use
  Company Number: US-GLAXOSMITHKLINE-A0410505A

PATIENT
  Age: 23 Year
  Sex: Male

DRUGS (1)
  1. LAMICTAL [Suspect]
     Dosage: 100MG PER DAY
     Route: 048
     Dates: start: 20030410

REACTIONS (5)
  - CHILLS [None]
  - HEADACHE [None]
  - PHARYNGOLARYNGEAL PAIN [None]
  - PYREXIA [None]
  - VIRAL INFECTION [None]
